FAERS Safety Report 7401858-4 (Version None)
Quarter: 2011Q2

REPORT INFORMATION
  Report Type: 
  Country: None (occurrence: None)
  Receive Date: 20110408
  Receipt Date: 20101103
  Transmission Date: 20111010
  Serious: Yes (Hospitalization, Other)
  Sender: FDA-Public Use
  Company Number: US-BAYER-200942608NA

PATIENT
  Sex: Female

DRUGS (8)
  1. YAZ [Suspect]
     Indication: PAIN
     Route: 048
     Dates: start: 20070416, end: 20090228
  2. YAZ [Suspect]
     Indication: PREMENSTRUAL SYNDROME
  3. NEXIUM [Concomitant]
  4. CLINDAMYCIN [Concomitant]
  5. PANTOPRAZOLE [Concomitant]
  6. IBUPROFEN (ADVIL) [Concomitant]
  7. HYDROCODONE [Concomitant]
  8. PREVACID [Concomitant]

REACTIONS (8)
  - GASTROOESOPHAGEAL REFLUX DISEASE [None]
  - DUODENITIS [None]
  - BILE DUCT STONE [None]
  - BILIARY DYSKINESIA [None]
  - CHOLELITHIASIS [None]
  - GASTRITIS [None]
  - CHOLECYSTITIS [None]
  - PANCREATITIS [None]
